FAERS Safety Report 17137005 (Version 1)
Quarter: 2019Q4

REPORT INFORMATION
  Report Type: Spontaneous
  Country: US (occurrence: US)
  Receive Date: 20191210
  Receipt Date: 20191210
  Transmission Date: 20200122
  Serious: No
  Sender: FDA-Public Use
  Company Number: US-BRECKENRIDGE PHARMACEUTICAL, INC.-2077685

PATIENT
  Age: 38 Year
  Sex: Female
  Weight: 97.73 kg

DRUGS (2)
  1. DULOXETINE. [Suspect]
     Active Substance: DULOXETINE
     Indication: SCIATICA
     Route: 048
  2. TRAMADOL. [Interacting]
     Active Substance: TRAMADOL

REACTIONS (10)
  - Labelled drug-drug interaction medication error [None]
  - Vertigo [None]
  - Hyperhidrosis [None]
  - Syncope [None]
  - Serotonin syndrome [None]
  - Nausea [None]
  - Chills [None]
  - Panic reaction [None]
  - Hallucination [None]
  - Dry mouth [None]
